FAERS Safety Report 12726809 (Version 18)
Quarter: 2020Q3

REPORT INFORMATION
  Report Type: Spontaneous
  Country: US (occurrence: US)
  Receive Date: 20160908
  Receipt Date: 20200819
  Transmission Date: 20201102
  Serious: Yes (Death)
  Sender: FDA-Public Use
  Company Number: US-ACTELION-A-US2016-141740

PATIENT
  Age: 81 Year
  Sex: Female

DRUGS (28)
  1. ESBRIET [Suspect]
     Active Substance: PIRFENIDONE
     Indication: PRODUCT USED FOR UNKNOWN INDICATION
     Dosage: 801 MG, TID
     Route: 065
  2. BENADRYL [Concomitant]
     Active Substance: DIPHENHYDRAMINE HYDROCHLORIDE
  3. SPIRONOLACTONE. [Concomitant]
     Active Substance: SPIRONOLACTONE
     Dosage: 25 MG
     Dates: start: 20180525
  4. FUROSEMIDE. [Concomitant]
     Active Substance: FUROSEMIDE
     Dosage: 40 MG
     Dates: start: 20180525
  5. CHOLESTYRAMINE. [Concomitant]
     Active Substance: CHOLESTYRAMINE
     Dosage: 4 G
     Dates: start: 20180525
  6. NORCO [Concomitant]
     Active Substance: ACETAMINOPHEN\HYDROCODONE BITARTRATE
     Dosage: 5?325 MG
     Dates: start: 20180525
  7. CRESTOR [Concomitant]
     Active Substance: ROSUVASTATIN CALCIUM
     Dosage: 10 MG
     Dates: start: 20180525
  8. METAMUCIL [Concomitant]
     Active Substance: PLANTAGO SEED
  9. ACETAMINOPHEN. [Concomitant]
     Active Substance: ACETAMINOPHEN
     Dosage: 500 MG
     Dates: start: 20180525
  10. CALCIUM [Concomitant]
     Active Substance: CALCIUM
     Dosage: 600 MG
     Dates: start: 20180525
  11. TYLENOL [Concomitant]
     Active Substance: ACETAMINOPHEN
  12. TYVASO [Concomitant]
     Active Substance: TREPROSTINIL
  13. DIOVAN [Concomitant]
     Active Substance: VALSARTAN
  14. AMLODIPINE [Concomitant]
     Active Substance: AMLODIPINE BESYLATE
     Dosage: 10 MG
     Dates: start: 20180525
  15. PREDNISONE. [Concomitant]
     Active Substance: PREDNISONE
  16. METOLAZONE. [Concomitant]
     Active Substance: METOLAZONE
     Dosage: 10 MG
     Dates: start: 20180525
  17. DYCLONINE [Concomitant]
     Active Substance: DYCLONINE
  18. DIAZEPAM. [Concomitant]
     Active Substance: DIAZEPAM
     Dosage: 5 MG
     Dates: start: 20180525
  19. DETROL LA [Concomitant]
     Active Substance: TOLTERODINE TARTRATE
     Dosage: 4 MG
     Dates: start: 20180525
  20. HYDROCODONE [Concomitant]
     Active Substance: HYDROCODONE
  21. DICLOPHENAC [Concomitant]
     Active Substance: DICLOFENAC SODIUM
  22. SERTRALINE [Concomitant]
     Active Substance: SERTRALINE HYDROCHLORIDE
     Dosage: 50 MG
     Dates: start: 20180525
  23. VITAMIN D3 [Concomitant]
     Active Substance: CHOLECALCIFEROL
     Dosage: 2000 U/L
     Dates: start: 20180525
  24. DICYCLOMINE [Concomitant]
     Active Substance: DICYCLOMINE HYDROCHLORIDE
     Dosage: 20 MG
     Dates: start: 20180525
  25. OPSUMIT [Suspect]
     Active Substance: MACITENTAN
     Indication: PULMONARY ARTERIAL HYPERTENSION
     Dosage: 10 MG, QD
     Route: 048
     Dates: start: 20140314
  26. ADCIRCA [Concomitant]
     Active Substance: TADALAFIL
  27. ELIQUIS [Concomitant]
     Active Substance: APIXABAN
     Dosage: 5 MG
     Dates: start: 20180525
  28. ASPIRIN. [Concomitant]
     Active Substance: ASPIRIN
     Dosage: 81 MG
     Dates: start: 20180525

REACTIONS (22)
  - Herpes zoster [Not Recovered/Not Resolved]
  - Cough [Unknown]
  - Blood pressure decreased [Unknown]
  - Sinusitis [Unknown]
  - Nasopharyngitis [Unknown]
  - Product dose omission issue [Not Recovered/Not Resolved]
  - Peripheral swelling [Unknown]
  - Fatigue [Unknown]
  - Depression [Unknown]
  - Weight increased [Recovered/Resolved]
  - Diarrhoea [Unknown]
  - Speech disorder [Unknown]
  - Nausea [Unknown]
  - Hypotension [Unknown]
  - Dizziness [Unknown]
  - Dental operation [Unknown]
  - Dyspnoea [Unknown]
  - Memory impairment [Not Recovered/Not Resolved]
  - Death [Fatal]
  - Fluid retention [Unknown]
  - Chest pain [Unknown]
  - Oedema [Unknown]

NARRATIVE: CASE EVENT DATE: 20160810
